FAERS Safety Report 16153986 (Version 1)
Quarter: 2019Q2

REPORT INFORMATION
  Report Type: Spontaneous
  Country: US (occurrence: US)
  Receive Date: 20190403
  Receipt Date: 20190403
  Transmission Date: 20190711
  Serious: Yes (Hospitalization)
  Sender: FDA-Public Use
  Company Number: US-PFIZER INC-2019128948

PATIENT
  Age: 74 Year
  Sex: Female
  Weight: 56.68 kg

DRUGS (3)
  1. RAPAMUNE [Suspect]
     Active Substance: SIROLIMUS
     Indication: RENAL TRANSPLANT
     Dosage: UNK, (TWO DAYS A WEEK A HALF)
  2. RAPAMUNE [Suspect]
     Active Substance: SIROLIMUS
     Dosage: UNK(1MG EVERY DAY EXCEPT TUESDAYS AND THURSDAYS AND ON TUESDAYS AND THURSDAYS, SHE WAS TAKING 0.5MG)
     Route: 048
  3. RAPAMUNE [Suspect]
     Active Substance: SIROLIMUS
     Dosage: 0.5 MG, DAILY (0.5 MG EVERY DAY)

REACTIONS (3)
  - Hernia [Recovering/Resolving]
  - Product use issue [Unknown]
  - Drug level increased [Unknown]
